FAERS Safety Report 9714301 (Version 2)
Quarter: 2014Q3

REPORT INFORMATION
  Report Type: Report from Study
  Country: DE (occurrence: TR)
  Receive Date: 20131126
  Receipt Date: 20140709
  Transmission Date: 20150326
  Serious: Yes (Death)
  Sender: FDA-Public Use
  Company Number: DE-ACTELION-A-US2013-91829

PATIENT
  Age: 16 Year
  Sex: Female
  Weight: 50 kg

DRUGS (1)
  1. VENTAVIS [Suspect]
     Active Substance: ILOPROST
     Indication: PULMONARY HYPERTENSION
     Dosage: 6X/1
     Route: 055
     Dates: start: 20111129

REACTIONS (3)
  - Pulmonary hypertension [Fatal]
  - Ventricular septal defect [Fatal]
  - Off label use [Unknown]

NARRATIVE: CASE EVENT DATE: 20111129
